FAERS Safety Report 7105809-1 (Version None)
Quarter: 2010Q4

REPORT INFORMATION
  Report Type: 
  Country: None (occurrence: None)
  Receive Date: 20101110
  Receipt Date: 20101102
  Transmission Date: 20110411
  Serious: Yes (Hospitalization)
  Sender: FDA-Public Use
  Company Number: DSA_43458_2010

PATIENT
  Sex: Female

DRUGS (1)
  1. XENAZINE [Suspect]
     Indication: HUNTINGTON'S DISEASE
     Dosage: (12.5 MG TID ORAL), (50 MG BID ORAL)
     Route: 048
     Dates: start: 20090501, end: 20090101

REACTIONS (2)
  - DEPRESSION [None]
  - SELF INJURIOUS BEHAVIOUR [None]
